FAERS Safety Report 7668049-3 (Version None)
Quarter: 2011Q3

REPORT INFORMATION
  Report Type: 
  Country: None (occurrence: None)
  Receive Date: 20110808
  Receipt Date: 20110804
  Transmission Date: 20111222
  Serious: Yes (Other)
  Sender: FDA-Public Use
  Company Number: US-PFIZER INC-2011172822

PATIENT
  Sex: Male
  Weight: 85.261 kg

DRUGS (9)
  1. CHANTIX [Suspect]
     Dosage: 1 MG, 2X/DAY
     Dates: start: 20110701, end: 20110729
  2. ACETYLSALICYLIC ACID [Concomitant]
     Indication: ANTIPLATELET THERAPY
  3. NOVOLOG [Concomitant]
     Dosage: 34 UNITS IN THE MORNING
  4. ACETYLSALICYLIC ACID [Concomitant]
     Indication: CARDIAC DISORDER
     Dosage: 81 MG, DAILY
  5. NOVOLOG [Concomitant]
     Indication: DIABETES MELLITUS
     Dosage: UNK
     Route: 058
  6. CHANTIX [Suspect]
     Dosage: 0.5 MG, 2X/DAY
     Dates: start: 20110701, end: 20110701
  7. CYMBALTA [Concomitant]
     Indication: DEPRESSION
     Dosage: 60 MG, DAILY
  8. LIPITOR [Concomitant]
     Indication: BLOOD CHOLESTEROL INCREASED
     Dosage: 10 MG, DAILY
  9. CHANTIX [Suspect]
     Indication: SMOKING CESSATION THERAPY
     Dosage: 0.5 MG, DAILY
     Dates: start: 20110720, end: 20110701

REACTIONS (2)
  - AGGRESSION [None]
  - LOSS OF CONSCIOUSNESS [None]
